FAERS Safety Report 8962172 (Version 1)
Quarter: 2012Q4

REPORT INFORMATION
  Report Type: Report from Study
  Country: JP (occurrence: JP)
  Receive Date: 20121212
  Receipt Date: 20121212
  Transmission Date: 20130627
  Serious: Yes (Death, Other)
  Sender: FDA-Public Use
  Company Number: JP-009507513-2012SP034424

PATIENT
  Age: 63 Year
  Sex: Male
  Weight: 84 kg

DRUGS (16)
  1. TEMOZOLOMIDE [Suspect]
     Indication: GLIOBLASTOMA MULTIFORME
     Dosage: 200 mg/m2, qd
     Route: 041
     Dates: start: 20111215, end: 20111216
  2. TEMOZOLOMIDE [Suspect]
     Dosage: 200 mg/m2, qd
     Route: 041
     Dates: start: 20120109, end: 20120113
  3. TEMOZOLOMIDE [Suspect]
     Dosage: 200 mg/m2, qd
     Route: 041
     Dates: start: 20120213, end: 20120216
  4. TEMODAL [Suspect]
     Indication: GLIOBLASTOMA MULTIFORME
     Dosage: UNK
     Route: 048
     Dates: start: 20110411, end: 20111115
  5. TEMODAL [Suspect]
     Dosage: UNK
     Route: 048
     Dates: start: 20111212, end: 20111214
  6. TEMODAL [Suspect]
     Dosage: 200 mg/m2, qd
     Route: 048
     Dates: start: 20120312, end: 20120316
  7. TEMODAL [Suspect]
     Dosage: 200 mg/m2, qd
     Route: 048
     Dates: start: 20120416, end: 20120420
  8. TEGRETOL [Suspect]
     Indication: EPILEPSY
     Route: 048
     Dates: start: 20110302, end: 20120512
  9. DECADRON (DEXAMETHASONE) [Suspect]
     Indication: PROPHYLAXIS
     Route: 048
     Dates: start: 20120113, end: 20120512
  10. DEPAKENE [Concomitant]
     Indication: EPILEPSY
     Route: 048
     Dates: start: 20110304, end: 20120512
  11. MAGMITT [Concomitant]
     Indication: CONSTIPATION
     Route: 048
     Dates: start: 20110303, end: 20120512
  12. PANTOSIN [Concomitant]
     Indication: CONSTIPATION
     Route: 048
     Dates: start: 20110303, end: 20120512
  13. TAKEPRON [Concomitant]
     Indication: GASTROOESOPHAGEAL REFLUX DISEASE
     Route: 048
     Dates: start: 20111220, end: 20120512
  14. PHENOBAL [Concomitant]
     Indication: PROPHYLAXIS
     Route: 030
     Dates: start: 20120126, end: 20120512
  15. INTERFERON (UNSPECIFIED) [Concomitant]
     Indication: BRAIN NEOPLASM
     Route: 041
     Dates: start: 20120416, end: 20120420
  16. PARIET [Concomitant]
     Dosage: UNK
     Route: 048
     Dates: start: 20110326, end: 20111220

REACTIONS (14)
  - Disease progression [Fatal]
  - Brain oedema [Not Recovered/Not Resolved]
  - Convulsion [Recovered/Resolved]
  - Platelet count decreased [Recovered/Resolved]
  - Platelet count decreased [Recovered/Resolved]
  - Hepatic function abnormal [Recovering/Resolving]
  - Pneumonia [Recovering/Resolving]
  - Vomiting [Recovering/Resolving]
  - Platelet count decreased [Recovering/Resolving]
  - White blood cell count decreased [Recovered/Resolved]
  - White blood cell count decreased [Recovered/Resolved]
  - Lymphocyte count decreased [Recovering/Resolving]
  - Hypoproteinaemia [Not Recovered/Not Resolved]
  - Blood urea increased [Recovered/Resolved]
